FAERS Safety Report 6958418-9 (Version None)
Quarter: 2010Q3

REPORT INFORMATION
  Report Type: 
  Country: None (occurrence: None)
  Receive Date: 20100830
  Receipt Date: 20100830
  Transmission Date: 20110219
  Serious: Yes (Other)
  Sender: FDA-Public Use
  Company Number: None

PATIENT
  Sex: Female
  Weight: 72.5755 kg

DRUGS (2)
  1. FLUPHENAZINE [Suspect]
     Indication: MOOD SWINGS
     Dosage: 3 TABS. 2 X DAY
     Dates: start: 20100501, end: 20100701
  2. FLUPHENAZINE [Suspect]
     Indication: NERVOUSNESS
     Dosage: 3 TABS. 2 X DAY
     Dates: start: 20100501, end: 20100701

REACTIONS (3)
  - ABDOMINAL DISTENSION [None]
  - CHROMATURIA [None]
  - URINE ANALYSIS ABNORMAL [None]
